FAERS Safety Report 7311804-X (Version None)
Quarter: 2011Q1

REPORT INFORMATION
  Report Type: 
  Country: None (occurrence: None)
  Receive Date: 20110224
  Receipt Date: 20110215
  Transmission Date: 20110831
  Serious: Yes (Hospitalization, Other)
  Sender: FDA-Public Use
  Company Number: US-PFIZER INC-2010141197

PATIENT
  Sex: Male

DRUGS (2)
  1. SUTENT [Suspect]
     Dosage: 37.5 MG, 1X/DAY, (12.5 MG 3 CAPSULES), 4 WEEKS ON/ 2 WEEKS OFF
     Dates: start: 20110121
  2. SUTENT [Suspect]
     Indication: METASTATIC RENAL CELL CARCINOMA
     Dosage: 50 MG, 1X/DAY, 4 WEEKS ON/ 2 WEEKS OFF
     Route: 048
     Dates: start: 20101015

REACTIONS (4)
  - JOINT SWELLING [None]
  - DYSPNOEA [None]
  - OEDEMA PERIPHERAL [None]
  - DECUBITUS ULCER [None]
